FAERS Safety Report 10217341 (Version 4)
Quarter: 2014Q4

REPORT INFORMATION
  Report Type: Spontaneous
  Country: JP (occurrence: JP)
  Receive Date: 20140604
  Receipt Date: 20141017
  Transmission Date: 20150528
  Serious: Yes (Death)
  Sender: FDA-Public Use
  Company Number: JP-SA-2014SA068919

PATIENT
  Age: 74 Year
  Sex: Male
  Weight: 55 kg

DRUGS (24)
  1. ELPLAT [Suspect]
     Active Substance: OXALIPLATIN
     Indication: COLON CANCER
     Dosage: FORM:INFUSION SOLUTION INJECTION
     Route: 041
     Dates: start: 20140312, end: 20140312
  2. GOSHAJINKIGAN [Concomitant]
     Active Substance: HERBALS
     Dates: start: 20140312
  3. ASPIRIN. [Concomitant]
     Active Substance: ASPIRIN
     Dates: start: 20140422, end: 20140423
  4. GAMMA GLOBULIN [Concomitant]
     Active Substance: IMMUNE GLOBULIN NOS
     Dates: start: 20140412, end: 20140414
  5. NAFAMOSTAT [Concomitant]
     Active Substance: NAFAMOSTAT
     Dates: start: 20140422, end: 20140422
  6. 5-FU [Concomitant]
     Active Substance: FLUOROURACIL
     Dates: start: 20140129, end: 20140312
  7. ELPLAT [Suspect]
     Active Substance: OXALIPLATIN
     Indication: COLON CANCER
     Dosage: FORM:INFUSION SOLUTION INJECTION
     Route: 041
     Dates: start: 20140226, end: 20140226
  8. DECADRON [Concomitant]
     Active Substance: DEXAMETHASONE
     Dates: start: 20140129, end: 20140312
  9. PALUX [Concomitant]
     Dates: start: 20140409
  10. SUNRYTHM [Concomitant]
     Active Substance: PILSICAINIDE HYDROCHLORIDE
     Dates: start: 20140417, end: 20140422
  11. SIGMART [Concomitant]
     Active Substance: NICORANDIL
     Dates: start: 20140422, end: 20140422
  12. VANCOMYCIN [Concomitant]
     Active Substance: VANCOMYCIN
     Dates: start: 20140418, end: 20140420
  13. HEPARIN SODIUM. [Concomitant]
     Active Substance: HEPARIN SODIUM
     Dates: start: 20140418, end: 20140421
  14. AMPICILLIN SODIUM/SULBACTAM SODIUM [Concomitant]
     Active Substance: AMPICILLIN SODIUM\SULBACTAM SODIUM
     Dates: start: 20140409, end: 20140412
  15. ALOXI [Concomitant]
     Active Substance: PALONOSETRON HYDROCHLORIDE
     Dates: start: 20140129, end: 20140312
  16. MEROPENEM. [Concomitant]
     Active Substance: MEROPENEM
     Dates: start: 20140412
  17. ELPLAT [Suspect]
     Active Substance: OXALIPLATIN
     Indication: COLON CANCER
     Dosage: FORM:INFUSION SOLUTION INJECTION
     Route: 041
     Dates: start: 20140129, end: 20140129
  18. CALCIUM LEVOFOLINATE [Concomitant]
     Active Substance: LEVOLEUCOVORIN CALCIUM
     Indication: COLON CANCER
     Dosage: 300 MG/BODY
     Route: 041
  19. PROSTANDIN [Concomitant]
     Dates: start: 20140409
  20. HORIZON [Concomitant]
     Active Substance: DIAZEPAM
     Dates: start: 20140417
  21. INSULIN [Concomitant]
     Active Substance: INSULIN NOS
     Dates: start: 20140428
  22. EMEND [Concomitant]
     Active Substance: APREPITANT
     Dates: start: 20140129, end: 20140312
  23. CADEX [Concomitant]
     Dates: start: 20140409
  24. CALCICOL [Concomitant]
     Active Substance: CALCIUM GLUCONATE
     Dates: start: 20140428

REACTIONS (6)
  - Neuropathy peripheral [Not Recovered/Not Resolved]
  - Thrombotic microangiopathy [Fatal]
  - Decreased appetite [Not Recovered/Not Resolved]
  - Pneumonia [Not Recovered/Not Resolved]
  - Aspartate aminotransferase increased [Not Recovered/Not Resolved]
  - Alanine aminotransferase increased [Not Recovered/Not Resolved]

NARRATIVE: CASE EVENT DATE: 20140226
